FAERS Safety Report 25187188 (Version 5)
Quarter: 2025Q2

REPORT INFORMATION
  Report Type: Report from Study
  Country: CA (occurrence: CA)
  Receive Date: 20250411
  Receipt Date: 20250630
  Transmission Date: 20250716
  Serious: Yes (Other)
  Sender: TAKEDA
  Company Number: CA-TAKEDA-2024TUS054948

PATIENT
  Sex: Male
  Weight: 96 kg

DRUGS (19)
  1. GLASSIA [Suspect]
     Active Substance: .ALPHA.1-PROTEINASE INHIBITOR HUMAN
     Indication: Alpha-1 antitrypsin deficiency
     Dosage: 6 DOSAGE FORM, 1/WEEK
     Dates: start: 20240515
  2. GLASSIA [Suspect]
     Active Substance: .ALPHA.1-PROTEINASE INHIBITOR HUMAN
     Dosage: 6 DOSAGE FORM, 1/WEEK
  3. GLASSIA [Suspect]
     Active Substance: .ALPHA.1-PROTEINASE INHIBITOR HUMAN
     Dosage: 5700 MILLIGRAM, 1/WEEK
  4. GLASSIA [Suspect]
     Active Substance: .ALPHA.1-PROTEINASE INHIBITOR HUMAN
     Dosage: 5700 MILLIGRAM, 1/WEEK
  5. GLASSIA [Suspect]
     Active Substance: .ALPHA.1-PROTEINASE INHIBITOR HUMAN
     Dosage: 6000 MILLIGRAM, 1/WEEK
  6. GLASSIA [Suspect]
     Active Substance: .ALPHA.1-PROTEINASE INHIBITOR HUMAN
     Dosage: 6000 MILLIGRAM, 1/WEEK
  7. GLASSIA [Suspect]
     Active Substance: .ALPHA.1-PROTEINASE INHIBITOR HUMAN
     Dosage: 6000 MILLIGRAM, 1/WEEK
  8. GLASSIA [Suspect]
     Active Substance: .ALPHA.1-PROTEINASE INHIBITOR HUMAN
     Dosage: 6000 MILLIGRAM, 1/WEEK
  9. GLASSIA [Suspect]
     Active Substance: .ALPHA.1-PROTEINASE INHIBITOR HUMAN
     Dosage: 6000 MILLIGRAM, 1/WEEK
  10. GLYCOPYRRONIUM\INDACATEROL [Concomitant]
     Active Substance: GLYCOPYRRONIUM\INDACATEROL
  11. ALBUTEROL [Concomitant]
     Active Substance: ALBUTEROL
  12. ASPIRIN [Concomitant]
     Active Substance: ASPIRIN
  13. INSULIN NOS [Concomitant]
     Active Substance: INSULIN NOS
  14. METFORMIN [Concomitant]
     Active Substance: METFORMIN HYDROCHLORIDE
  15. PROLASTIN [Concomitant]
     Active Substance: .ALPHA.1-PROTEINASE INHIBITOR HUMAN
  16. PREDNISONE [Concomitant]
     Active Substance: PREDNISONE
     Dates: start: 20240529, end: 20240529
  17. PREDNISONE [Concomitant]
     Active Substance: PREDNISONE
  18. AMOXICILLIN\CLAVULANIC ACID [Concomitant]
     Active Substance: AMOXICILLIN\CLAVULANIC ACID
  19. OXYCODONE [Concomitant]
     Active Substance: OXYCODONE

REACTIONS (10)
  - Hepatic cancer [Not Recovered/Not Resolved]
  - Blood pressure abnormal [Unknown]
  - Respiratory tract infection [Not Recovered/Not Resolved]
  - Heart rate increased [Unknown]
  - Productive cough [Not Recovered/Not Resolved]
  - Malaise [Not Recovered/Not Resolved]
  - Tooth infection [Not Recovered/Not Resolved]
  - Dental discomfort [Recovered/Resolved]
  - Prostatic specific antigen increased [Unknown]
  - Pain [Not Recovered/Not Resolved]
